FAERS Safety Report 12162609 (Version 1)
Quarter: 2016Q1

REPORT INFORMATION
  Report Type: Spontaneous
  Country: US (occurrence: US)
  Receive Date: 20160309
  Receipt Date: 20160309
  Transmission Date: 20160526
  Serious: Yes (Other)
  Sender: FDA-Public Use
  Company Number: US-PFIZER INC-2016140463

PATIENT
  Age: 53 Year
  Sex: Female

DRUGS (2)
  1. DUAVEE [Suspect]
     Active Substance: BAZEDOXIFENE ACETATE\ESTROGENS, CONJUGATED
  2. SYNTHROID [Suspect]
     Active Substance: LEVOTHYROXINE SODIUM

REACTIONS (3)
  - Endometrial cancer [Unknown]
  - Uterine leiomyoma [Unknown]
  - Endometrial thickening [Unknown]
